FAERS Safety Report 7576704-9 (Version None)
Quarter: 2011Q2

REPORT INFORMATION
  Report Type: 
  Country: None (occurrence: None)
  Receive Date: 20110628
  Receipt Date: 20110617
  Transmission Date: 20111010
  Serious: Yes (Death)
  Sender: FDA-Public Use
  Company Number: US-ASTELLAS-2011US003332

PATIENT
  Sex: Male
  Weight: 82 kg

DRUGS (2)
  1. ERLOTINIB HYDROCHLORIDE [Suspect]
     Indication: NON-SMALL CELL LUNG CANCER
     Dosage: 150 MG, UID/QD
     Route: 048
     Dates: start: 20100105, end: 20100121
  2. METMAB [Suspect]
     Indication: NON-SMALL CELL LUNG CANCER
     Dosage: 250 UNK, TOTAL DOSE
     Route: 042
     Dates: start: 20100105, end: 20100105

REACTIONS (1)
  - DEATH [None]
